FAERS Safety Report 8816358 (Version 1)
Quarter: 2012Q4

REPORT INFORMATION
  Report Type: Spontaneous
  Country: US (occurrence: None)
  Receive Date: 20120927
  Receipt Date: 20120927
  Transmission Date: 20130627
  Serious: Yes (Other)
  Sender: FDA-Public Use
  Company Number: None

PATIENT
  Sex: Female

DRUGS (1)
  1. WARFARIN [Suspect]
     Indication: ARTERIAL THROMBOSIS
     Dosage: 7.5 mg qhs po
     Route: 048
     Dates: start: 20110912

REACTIONS (2)
  - Product substitution issue [None]
  - Alopecia [None]
